FAERS Safety Report 22119287 (Version 1)
Quarter: 2023Q1

REPORT INFORMATION
  Report Type: Spontaneous
  Country: US (occurrence: None)
  Receive Date: 20230320
  Receipt Date: 20230320
  Transmission Date: 20230418
  Serious: Yes (Hospitalization)
  Sender: FDA-Public Use
  Company Number: None

PATIENT
  Age: 61 Year
  Sex: Female

DRUGS (1)
  1. EVEROLIMUS [Suspect]
     Active Substance: EVEROLIMUS
     Dosage: 10 MG DAILY ORAL
     Route: 048

REACTIONS (13)
  - Fatigue [None]
  - Asthenia [None]
  - Diarrhoea [None]
  - Immunisation reaction [None]
  - Malaise [None]
  - Aphasia [None]
  - Cough [None]
  - Chills [None]
  - Dyspnoea [None]
  - Chest pain [None]
  - Nasopharyngitis [None]
  - Infection [None]
  - Cognitive disorder [None]

NARRATIVE: CASE EVENT DATE: 20230320
